FAERS Safety Report 21040425 (Version 3)
Quarter: 2022Q3

REPORT INFORMATION
  Report Type: Spontaneous
  Country: JP (occurrence: JP)
  Receive Date: 20220704
  Receipt Date: 20220819
  Transmission Date: 20221027
  Serious: Yes (Death, Other)
  Sender: FDA-Public Use
  Company Number: JP-PFIZER INC-PV202200012700

PATIENT
  Age: 60 Year
  Sex: Male
  Weight: 58.7 kg

DRUGS (13)
  1. RHEUMATREX [Suspect]
     Active Substance: METHOTREXATE SODIUM
     Indication: Rheumatoid arthritis
     Dosage: 2 CAPSULEX2/DAY, WEEKLY, EVERY WEDNESDAY
     Route: 048
     Dates: start: 20220413, end: 20220511
  2. IGURATIMOD [Suspect]
     Active Substance: IGURATIMOD
     Indication: Rheumatoid arthritis
     Dosage: 25 MG, 1X/DAY
     Route: 048
     Dates: start: 20220412, end: 20220511
  3. TECENTRIQ [Suspect]
     Active Substance: ATEZOLIZUMAB
     Indication: Lung adenocarcinoma
     Dosage: UNK
     Dates: start: 20220412, end: 20220426
  4. ABRAXANE [Suspect]
     Active Substance: PACLITAXEL
     Indication: Lung adenocarcinoma
     Dosage: UNK
     Dates: start: 20220412, end: 20220426
  5. CARBOPLATIN [Suspect]
     Active Substance: CARBOPLATIN
     Indication: Lung adenocarcinoma
     Dosage: UNK
     Dates: start: 20220412, end: 20220426
  6. SYMPROIC [Concomitant]
     Active Substance: NALDEMEDINE
     Dosage: 0.2MG, 1X/DAY, AFTER BREAKFAST
     Dates: start: 20220430, end: 20220522
  7. FOLIC ACID [Concomitant]
     Active Substance: FOLIC ACID
     Dosage: 5 MG, WEEKLY, AFTER BREAKFAST, EVERY FRIDAY
     Dates: start: 20220413, end: 20220520
  8. IRSOGLADINE MALEATE [Concomitant]
     Active Substance: IRSOGLADINE MALEATE
     Dosage: 2 MG, 2X/DAY, AFTER BREAKFAST AND DINNER
     Dates: start: 20220413, end: 20220520
  9. MAGNESIUM OXIDE [Concomitant]
     Active Substance: MAGNESIUM OXIDE
     Dosage: 330 MG, 3X/DAY, AFTER EVERY MEAL
     Dates: start: 20220412, end: 20220520
  10. NAPROXEN [Concomitant]
     Active Substance: NAPROXEN
     Dosage: 200 MG, 3X/DAY, AFTER EVERY MEAL
     Dates: start: 20220517, end: 20220522
  11. MS CONTIN [Concomitant]
     Active Substance: MORPHINE SULFATE
     Indication: Pain
     Dosage: 30 MG, 2X/DAY, 8AM AND 8PM
     Dates: start: 20220416, end: 20220520
  12. MS CONTIN [Concomitant]
     Active Substance: MORPHINE SULFATE
     Indication: Cough
  13. MORPHINE HYDROCHLORIDE [Concomitant]
     Active Substance: MORPHINE HYDROCHLORIDE
     Indication: Pain
     Dosage: 10 MG, AS NEEDED, AT THE TIME OF PAIN AND DIFFICULTY IN BREATHING
     Dates: start: 20220519, end: 20220521

REACTIONS (7)
  - Pneumocystis jirovecii pneumonia [Fatal]
  - Metastases to lung [Unknown]
  - Myelosuppression [Unknown]
  - Pneumonia cytomegaloviral [Unknown]
  - Radiation pneumonitis [Unknown]
  - Interstitial lung disease [Unknown]
  - Neoplasm progression [Unknown]

NARRATIVE: CASE EVENT DATE: 20220416
